FAERS Safety Report 15034437 (Version 1)
Quarter: 2018Q2

REPORT INFORMATION
  Report Type: Spontaneous
  Country: US (occurrence: US)
  Receive Date: 20180620
  Receipt Date: 20180620
  Transmission Date: 20180711
  Serious: No
  Sender: FDA-Public Use
  Company Number: US-CELGENEUS-USA-20180604571

PATIENT
  Age: 51 Year
  Sex: Female

DRUGS (5)
  1. OTEZLA [Suspect]
     Active Substance: APREMILAST
     Dosage: 30 MILLIGRAM
     Route: 048
     Dates: start: 201806
  2. OTEZLA [Suspect]
     Active Substance: APREMILAST
     Dosage: 60 MILLIGRAM
     Route: 048
     Dates: start: 201806
  3. OTEZLA [Suspect]
     Active Substance: APREMILAST
     Indication: PSORIASIS
     Dosage: 60 MILLIGRAM
     Route: 048
     Dates: start: 20180606
  4. OTEZLA [Suspect]
     Active Substance: APREMILAST
     Dosage: 10 MG IN MORNING AND 30 MG IN EVENING
     Route: 048
     Dates: start: 201806
  5. OTEZLA [Suspect]
     Active Substance: APREMILAST
     Dosage: 50 MILLIGRAM
     Route: 048
     Dates: start: 201806

REACTIONS (3)
  - Dizziness [Unknown]
  - Headache [Unknown]
  - Psoriasis [Unknown]

NARRATIVE: CASE EVENT DATE: 20180612
